FAERS Safety Report 5507315-4 (Version None)
Quarter: 2007Q4

REPORT INFORMATION
  Report Type: 
  Country: None (occurrence: None)
  Receive Date: 20071102
  Receipt Date: 20071022
  Transmission Date: 20080405
  Serious: Yes (Other)
  Sender: FDA-Public Use
  Company Number: US021374

PATIENT
  Sex: Female

DRUGS (14)
  1. TRISENOX [Suspect]
     Indication: ACUTE PROMYELOCYTIC LEUKAEMIA
     Dosage: 8.55 MG QD INTRAVENOUS DRIP
     Route: 041
     Dates: start: 20070905, end: 20070921
  2. HYDROCORTISONE SODIUM SUCCINATE [Suspect]
     Dosage: 100 MG QD INTRAVENOUS DRIP
     Route: 041
     Dates: start: 20070911, end: 20070921
  3. PREDNISOLONE [Suspect]
     Dosage: 15 MG QD ORAL
     Route: 048
     Dates: start: 20070922, end: 20070924
  4. PREDNISOLONE [Suspect]
     Dosage: 10 MG QD ORAL
     Route: 048
     Dates: start: 20070925, end: 20070927
  5. PREDNISOLONE [Suspect]
     Dosage: 5 MG QD ORAL
     Route: 048
     Dates: start: 20070928, end: 20070930
  6. SPIRONOLACTONE [Suspect]
     Dosage: 25 MG QD ORAL
     Route: 048
     Dates: start: 20070920, end: 20070920
  7. SPIRONOLACTONE [Suspect]
     Dosage: 50 MG QD ORAL
     Route: 048
     Dates: start: 20070921, end: 20070926
  8. FUROSEMIDE [Suspect]
     Dosage: 40 MG QD ORAL
     Route: 048
     Dates: start: 20070921, end: 20070926
  9. FUROSEMIDE [Suspect]
     Dosage: 10 MG QD ORAL
     Route: 048
     Dates: start: 20071011, end: 20071022
  10. GLYCYRRHIZIN [Concomitant]
  11. GLYCINE HCL [Concomitant]
  12. CYSTEINE [Concomitant]
  13. MAGNESIUM REPLACEMENT [Concomitant]
  14. POTASSIUM REPLACEMENT [Concomitant]

REACTIONS (8)
  - ALANINE AMINOTRANSFERASE INCREASED [None]
  - ASPARTATE AMINOTRANSFERASE INCREASED [None]
  - ELECTROCARDIOGRAM QT PROLONGED [None]
  - GAMMA-GLUTAMYLTRANSFERASE INCREASED [None]
  - HEPATIC FUNCTION ABNORMAL [None]
  - OEDEMA [None]
  - RASH [None]
  - WEIGHT INCREASED [None]
